FAERS Safety Report 8327062-3 (Version None)
Quarter: 2012Q2

REPORT INFORMATION
  Report Type: 
  Country: None (occurrence: None)
  Receive Date: 20120501
  Receipt Date: 20120424
  Transmission Date: 20120825
  Serious: Yes (Hospitalization)
  Sender: FDA-Public Use
  Company Number: JP-B.I. PHARMACEUTICALS,INC./RIDGEFIELD-2012-BP-06916NB

PATIENT
  Age: 54 Year
  Sex: Female
  Weight: 44 kg

DRUGS (8)
  1. FENTANYL CITRATE [Concomitant]
     Dosage: 3 MG
     Route: 065
  2. METILON [Concomitant]
     Route: 065
  3. MAGMITT [Concomitant]
     Route: 065
  4. LANSOPRAZOLE [Concomitant]
     Route: 065
  5. OXINORM [Concomitant]
     Dosage: 10 MG
     Route: 065
  6. MOBIC [Suspect]
     Indication: CANCER PAIN
     Dosage: 15 MG
     Route: 065
     Dates: start: 20120229, end: 20120319
  7. ELNEOPA NO.2 [Concomitant]
     Route: 065
  8. LENDORMIN D TABLETS [Concomitant]

REACTIONS (2)
  - ASPARTATE AMINOTRANSFERASE INCREASED [None]
  - ALANINE AMINOTRANSFERASE INCREASED [None]
